FAERS Safety Report 4937095-2 (Version None)
Quarter: 2006Q1

REPORT INFORMATION
  Report Type: 
  Country: None (occurrence: None)
  Receive Date: 20060302
  Receipt Date: 20060217
  Transmission Date: 20060701
  Serious: Yes (Life-Threatening)
  Sender: FDA-Public Use
  Company Number: HQWYE910821FEB06

PATIENT
  Age: 78 Year
  Sex: Male

DRUGS (12)
  1. MYLOTARG [Suspect]
     Indication: ACUTE MYELOID LEUKAEMIA RECURRENT
     Dosage: A SINGLE 9 MG/M^2 DOSE INTRAVENOUS DRIP
     Route: 041
     Dates: start: 20051110, end: 20051110
  2. MYLOTARG [Suspect]
     Indication: ACUTE MYELOID LEUKAEMIA RECURRENT
     Dosage: A SINGLE 9 MG/M^2 DOSE INTRAVENOUS DRIP
     Route: 041
     Dates: start: 20051128, end: 20051128
  3. MODACIN (CEFTAZIDIME) [Concomitant]
  4. SULPERAZON (CEFOPERAZONE) [Concomitant]
  5. TIENAM (CILASTATIN/IMIPENEM) [Concomitant]
  6. CIPROFLOXACIN HYDROCHLORIDE [Concomitant]
  7. MEROPEN (MEROPENEM) [Concomitant]
  8. PRODIF (FOSFLUCONAZOLE) [Concomitant]
  9. POLYMYXIN B SULFATE [Concomitant]
  10. ULCERMIN (SUCRALFATE) [Concomitant]
  11. ALLOPURINOL [Concomitant]
  12. DIFLUCAN [Concomitant]

REACTIONS (14)
  - ALANINE AMINOTRANSFERASE INCREASED [None]
  - ANAEMIA [None]
  - ANOREXIA [None]
  - ASPARTATE AMINOTRANSFERASE INCREASED [None]
  - BLOOD ALKALINE PHOSPHATASE INCREASED [None]
  - BLOOD LACTATE DEHYDROGENASE INCREASED [None]
  - BONE MARROW FAILURE [None]
  - CONDITION AGGRAVATED [None]
  - FEBRILE NEUTROPENIA [None]
  - HYPERTENSION [None]
  - HYPOKALAEMIA [None]
  - PAIN IN EXTREMITY [None]
  - THROMBOCYTOPENIA [None]
  - WHITE BLOOD CELL COUNT DECREASED [None]
